FAERS Safety Report 16992819 (Version 1)
Quarter: 2019Q4

REPORT INFORMATION
  Report Type: Spontaneous
  Country: US (occurrence: US)
  Receive Date: 20190923
  Receipt Date: 20190923
  Transmission Date: 20200122
  Serious: No
  Sender: FDA-Public Use
  Company Number: None

PATIENT
  Age: 23 Year
  Sex: Female

DRUGS (1)
  1. BOTOX [Suspect]
     Active Substance: ONABOTULINUMTOXINA
     Indication: HYPERHIDROSIS
     Dosage: ?          OTHER FREQUENCY:OTHER;?
     Route: 016
     Dates: start: 20181124

REACTIONS (2)
  - Product dose omission [None]
  - Manufacturing product shipping issue [None]

NARRATIVE: CASE EVENT DATE: 20190923
